FAERS Safety Report 18197953 (Version 1)
Quarter: 2020Q3

REPORT INFORMATION
  Report Type: Spontaneous
  Country: DE (occurrence: DE)
  Receive Date: 20200826
  Receipt Date: 20200826
  Transmission Date: 20201103
  Serious: Yes (Other)
  Sender: FDA-Public Use
  Company Number: NVSC2020DE231447

PATIENT
  Sex: Male

DRUGS (2)
  1. AZOPT [Suspect]
     Active Substance: BRINZOLAMIDE
     Indication: PRODUCT USED FOR UNKNOWN INDICATION
     Dosage: 1 DRP, BID (ONE DROP PER EYE) (STARTED 2?3 YEARS AGO)
     Route: 047
  2. AZOPT [Suspect]
     Active Substance: BRINZOLAMIDE
     Dosage: 1 DRP, BID (ONE DROP PER EYE) (STARTED 2?3 YEARS AGO)
     Route: 047

REACTIONS (3)
  - Eye irritation [Unknown]
  - Inappropriate schedule of product administration [Unknown]
  - Neovascular age-related macular degeneration [Unknown]
